FAERS Safety Report 4570199-5 (Version None)
Quarter: 2005Q1

REPORT INFORMATION
  Report Type: 
  Country: None (occurrence: None)
  Receive Date: 20050202
  Receipt Date: 20050117
  Transmission Date: 20050727
  Serious: Yes (Other)
  Sender: FDA-Public Use
  Company Number: L05-USA-00277-02

PATIENT

DRUGS (3)
  1. CERVIDIL [Suspect]
     Dosage: 10 MG ONCE VG
  2. MISOPROSTOL [Concomitant]
  3. OXYTOCIN [Concomitant]

REACTIONS (4)
  - APGAR SCORE LOW [None]
  - DRUG EXPOSURE DURING PREGNANCY [None]
  - FOETAL HEART RATE ABNORMAL [None]
  - HYPOXIC ENCEPHALOPATHY [None]
